FAERS Safety Report 15245316 (Version 1)
Quarter: 2018Q3

REPORT INFORMATION
  Report Type: Spontaneous
  Country: US (occurrence: US)
  Receive Date: 20180713
  Receipt Date: 20180713
  Transmission Date: 20181010
  Serious: Yes (Death)
  Sender: FDA-Public Use
  Company Number: None

PATIENT
  Age: 46 Year
  Sex: Female
  Weight: 24.95 kg

DRUGS (1)
  1. ZYPREXA ZYDIS (GENERIC) [Suspect]
     Active Substance: OLANZAPINE

REACTIONS (6)
  - Dehydration [None]
  - Haemorrhage [None]
  - Product substitution issue [None]
  - Impaired work ability [None]
  - Chemical burn [None]
  - Drug hypersensitivity [None]

NARRATIVE: CASE EVENT DATE: 20100411
